FAERS Safety Report 7414703-8 (Version None)
Quarter: 2011Q2

REPORT INFORMATION
  Report Type: 
  Country: None (occurrence: None)
  Receive Date: 20110414
  Receipt Date: 20110202
  Transmission Date: 20111010
  Serious: No
  Sender: FDA-Public Use
  Company Number: US-B.I. PHARMACEUTICALS,INC./RIDGEFIELD-2011-BP-03598BP

PATIENT
  Sex: Male

DRUGS (10)
  1. PRADAXA [Suspect]
     Indication: ATRIAL FIBRILLATION
     Dosage: 300 MG
  2. ASPIRIN [Concomitant]
  3. LASIX [Concomitant]
  4. COREG [Concomitant]
  5. TIKOSYN [Concomitant]
  6. VICODIN [Concomitant]
  7. PRILOSEC [Concomitant]
  8. ALTACE [Concomitant]
  9. ZOCOR [Concomitant]
  10. ALDACTONE [Concomitant]

REACTIONS (1)
  - INTERNATIONAL NORMALISED RATIO [None]
